FAERS Safety Report 9851907 (Version 1)
Quarter: 2014Q1

REPORT INFORMATION
  Report Type: Spontaneous
  Country: BR (occurrence: BR)
  Receive Date: 20140129
  Receipt Date: 20140129
  Transmission Date: 20141002
  Serious: Yes (Hospitalization, Disabling)
  Sender: FDA-Public Use
  Company Number: BR-SA-2014SA009555

PATIENT
  Age: 12 Month
  Sex: Female
  Weight: 9 kg

DRUGS (14)
  1. MYOZYME [Suspect]
     Indication: GLYCOGEN STORAGE DISEASE TYPE II
     Route: 042
     Dates: start: 20130620
  2. VANCOMYCIN [Concomitant]
     Dosage: 500 MG
     Route: 042
  3. VANCOMYCIN [Concomitant]
     Dates: start: 20140115
  4. VANCOMYCIN [Concomitant]
     Dates: start: 20140116
  5. MEROPENEM [Concomitant]
     Dosage: 500 MG
     Route: 042
  6. MEROPENEM [Concomitant]
     Dates: start: 20140117, end: 20140118
  7. MEROPENEM [Concomitant]
  8. OMEPRAZOLE [Concomitant]
     Indication: PROPHYLAXIS
     Dosage: 20 MG SOLUBLE TABLET
  9. SPIRONOLACTONE [Concomitant]
     Indication: CARDIOMYOPATHY
     Dosage: 25 MG
  10. FUROSEMIDE [Concomitant]
     Indication: CARDIOMYOPATHY
     Dosage: 40 MG
  11. NIFEDIPINE [Concomitant]
     Indication: CARDIOMYOPATHY
     Dosage: 10 MG
  12. LACTOSE [Concomitant]
     Indication: CONSTIPATION
     Dosage: 120 ML (667 MG/ML)
     Route: 048
  13. FERROUS SULPHATE [Concomitant]
     Indication: ANAEMIA
     Dosage: 25 MG ELEMENTAL IRON (125 MG/ML)
  14. ERGOCALCIFEROL/RETINOL [Concomitant]
     Indication: VITAMIN SUPPLEMENTATION
     Dosage: VITAMIN A 5500 IU + VITAMIN D3 2200 IU/ML DROPS

REACTIONS (4)
  - Cerebrovascular accident [Not Recovered/Not Resolved]
  - Convulsion [Not Recovered/Not Resolved]
  - Hemiparesis [Not Recovered/Not Resolved]
  - Pyrexia [Not Recovered/Not Resolved]
